FAERS Safety Report 6212190-9 (Version None)
Quarter: 2009Q2

REPORT INFORMATION
  Report Type: 
  Country: None (occurrence: None)
  Receive Date: 20090602
  Receipt Date: 20090526
  Transmission Date: 20091009
  Serious: Yes (Hospitalization)
  Sender: FDA-Public Use
  Company Number: PHHO2008JP08670

PATIENT
  Sex: Female
  Weight: 48 kg

DRUGS (19)
  1. ICL670A ICL+DISTAB [Suspect]
     Indication: IRON OVERLOAD
     Dosage: 1000 MG, QD
     Route: 048
     Dates: start: 20080416, end: 20080501
  2. ICL670A ICL+DISTAB [Suspect]
     Dosage: 1000 MG, QD
     Route: 048
     Dates: start: 20080508, end: 20080512
  3. ICL670A ICL+DISTAB [Suspect]
     Dosage: 1000 MG, QD
     Route: 048
     Dates: start: 20080611
  4. FLUVOXAMINE MALEATE [Concomitant]
     Indication: NEUROSIS
     Dosage: 75 MG, UNK
     Route: 048
  5. SEDIEL [Concomitant]
     Indication: NEUROSIS
     Dosage: 30 MG, UNK
     Route: 048
  6. LENDORMIN [Concomitant]
     Indication: NEUROSIS
     Dosage: 0.25 MG, UNK
     Route: 048
  7. ALFAROL [Concomitant]
     Indication: OSTEOPOROSIS
     Dosage: 25 UG, UNK
     Route: 048
  8. FOLIAMIN [Concomitant]
     Indication: PORPHYRIA NON-ACUTE
     Dosage: 10 MG, UNK
     Route: 048
  9. VITAMEDIN CAPSULE [Concomitant]
     Indication: SKIN ULCER
     Dosage: 50 MG, UNK
     Route: 048
  10. TAKEPRON [Concomitant]
     Indication: PROPHYLAXIS
     Dosage: 15 MG, UNK
     Route: 048
  11. HICEE [Concomitant]
     Indication: PORPHYRIA NON-ACUTE
     Dosage: 1.5 G, UNK
     Route: 048
     Dates: start: 20080703
  12. MAGLAX [Concomitant]
     Indication: CONSTIPATION PROPHYLAXIS
     Dosage: 500 MG, UNK
     Route: 048
     Dates: start: 20080703
  13. SOLETON [Concomitant]
     Indication: SKIN ULCER
     Dosage: 240 MG, UNK
     Route: 048
     Dates: start: 20080501
  14. RIVOTRIL [Concomitant]
     Indication: SKIN ULCER
     Dosage: 0.5 MG, UNK
     Route: 048
  15. MYSLEE [Concomitant]
     Indication: NEUROSIS
     Dosage: 5 MG, UNK
     Route: 048
  16. DEPAS [Concomitant]
     Indication: NEUROSIS
     Dosage: 0.5 MG, UNK
     Route: 048
  17. HIRUDOID [Concomitant]
     Indication: SKIN ULCER
     Dosage: UNK
  18. PROMAC [Concomitant]
     Indication: SKIN ULCER
     Dosage: 150 MG, UNK
     Route: 048
  19. AZUNOL [Concomitant]
     Indication: SKIN ULCER
     Dosage: UNK
     Route: 061

REACTIONS (16)
  - CATARACT [None]
  - CONDITION AGGRAVATED [None]
  - COUGH [None]
  - DISEASE PROGRESSION [None]
  - FIBRIN D DIMER INCREASED [None]
  - FIBRIN DEGRADATION PRODUCTS INCREASED [None]
  - MALAISE [None]
  - MYALGIA [None]
  - NASOPHARYNGITIS [None]
  - NEUROSIS [None]
  - PAIN [None]
  - PERTUSSIS [None]
  - RETINAL HAEMORRHAGE [None]
  - SKIN ULCER [None]
  - VISUAL FIELD DEFECT [None]
  - VITRECTOMY [None]
